FAERS Safety Report 18850881 (Version 1)
Quarter: 2021Q1

REPORT INFORMATION
  Report Type: Report from Study
  Country: None (occurrence: US)
  Receive Date: 20210204
  Receipt Date: 20210204
  Transmission Date: 20210420
  Serious: Yes (Death, Hospitalization)
  Sender: FDA-Public Use
  Company Number: US-ABBVIE-20K-163-3711775-00

PATIENT
  Age: 90 Year
  Sex: Male

DRUGS (2)
  1. HUMIRA [Suspect]
     Active Substance: ADALIMUMAB
     Indication: COLITIS ULCERATIVE
     Route: 058
  2. HUMIRA [Suspect]
     Active Substance: ADALIMUMAB
     Indication: CROHN^S DISEASE

REACTIONS (4)
  - COVID-19 [Fatal]
  - Atrial fibrillation [Recovering/Resolving]
  - Pain [Not Recovered/Not Resolved]
  - Intestinal perforation [Fatal]

NARRATIVE: CASE EVENT DATE: 202012
